FAERS Safety Report 9995192 (Version 1)
Quarter: 2014Q1

REPORT INFORMATION
  Report Type: Spontaneous
  Country: US (occurrence: None)
  Receive Date: 20140225
  Receipt Date: 20140225
  Transmission Date: 20141002
  Serious: Yes (Other)
  Sender: FDA-Public Use
  Company Number: 2013-243

PATIENT
  Age: 41 Year
  Sex: Female

DRUGS (2)
  1. PRIALT (ZICONOTIDE) INTRATHECAL INFUSION [Suspect]
     Indication: PAIN
     Dosage: 0.083 MCG, ONCE/NOUR, INTRATHECAL
     Route: 037
     Dates: start: 20130227, end: 20130405
  2. PRIALT (ZICONOTIDE) INTRATHECAL INFUSION [Suspect]
     Indication: COMPLEX REGIONAL PAIN SYNDROME
     Dosage: 0.083 MCG, ONCE/NOUR, INTRATHECAL
     Route: 037
     Dates: start: 20130227, end: 20130405

REACTIONS (7)
  - Hallucination [None]
  - Mood swings [None]
  - Migraine [None]
  - Disturbance in attention [None]
  - Sedation [None]
  - Memory impairment [None]
  - Device issue [None]
